FAERS Safety Report 18417852 (Version 2)
Quarter: 2020Q4

REPORT INFORMATION
  Report Type: Spontaneous
  Country: US (occurrence: US)
  Receive Date: 20201022
  Receipt Date: 20201106
  Transmission Date: 20210114
  Serious: Yes (Other)
  Sender: FDA-Public Use
  Company Number: US-BAXTER-2020BAX021482

PATIENT
  Age: 2 Year
  Sex: Female

DRUGS (11)
  1. METHOTREXATE. [Suspect]
     Active Substance: METHOTREXATE
     Route: 065
  2. DACARBAZINE. [Suspect]
     Active Substance: DACARBAZINE
     Indication: DESMOID TUMOUR
     Route: 065
  3. HYDROXYUREA. [Suspect]
     Active Substance: HYDROXYUREA
     Indication: DESMOID TUMOUR
     Route: 065
  4. SORAFENIB [Suspect]
     Active Substance: SORAFENIB
     Indication: DESMOID TUMOUR
     Route: 065
  5. METHOTREXATE. [Suspect]
     Active Substance: METHOTREXATE
     Indication: DESMOID TUMOUR
     Route: 065
  6. DOXIL [Suspect]
     Active Substance: DOXORUBICIN HYDROCHLORIDE
     Indication: DESMOID TUMOUR
     Route: 065
  7. VINBLASTINE [Suspect]
     Active Substance: VINBLASTINE
     Indication: DESMOID TUMOUR
     Route: 065
  8. VINBLASTINE [Suspect]
     Active Substance: VINBLASTINE
     Route: 065
  9. DOXIL [Suspect]
     Active Substance: DOXORUBICIN HYDROCHLORIDE
     Route: 065
  10. PAZOPANIB [Suspect]
     Active Substance: PAZOPANIB
     Indication: DESMOID TUMOUR
     Route: 065
  11. SORAFENIB [Suspect]
     Active Substance: SORAFENIB
     Route: 065

REACTIONS (1)
  - Desmoid tumour [Not Recovered/Not Resolved]
